FAERS Safety Report 10142776 (Version 3)
Quarter: 2014Q2

REPORT INFORMATION
  Report Type: Spontaneous
  Country: GB (occurrence: None)
  Receive Date: 20140428
  Receipt Date: 20140529
  Transmission Date: 20141212
  Serious: Yes (Other)
  Sender: FDA-Public Use
  Company Number: AUR-APL-2014-04831

PATIENT
  Age: 55 Year
  Sex: Female

DRUGS (7)
  1. CITALOPRAM (CITALOPRAM) [Suspect]
     Indication: DEPRESSION
     Route: 048
     Dates: start: 201303, end: 201402
  2. KEPPRA [Suspect]
     Indication: EPILEPSY
     Route: 048
     Dates: start: 201401, end: 20140216
  3. ZONISAMIDE [Suspect]
     Indication: EPILEPSY
     Route: 051
     Dates: start: 201401, end: 20140226
  4. ASACOL MR [Concomitant]
  5. CLOBAZAM (CLOBAZAM) [Concomitant]
  6. OMEPRAZOLE (OMEPRAZOLE) [Concomitant]
  7. TEGRETOL RETARD (CARBAMAZEPINE) [Concomitant]

REACTIONS (6)
  - Suicidal ideation [None]
  - Drug ineffective [None]
  - Drug withdrawal syndrome [None]
  - Epilepsy [None]
  - Self-injurious ideation [None]
  - Anxiety [None]
